FAERS Safety Report 17365324 (Version 1)
Quarter: 2020Q1

REPORT INFORMATION
  Report Type: Spontaneous
  Country: ES (occurrence: ES)
  Receive Date: 20200204
  Receipt Date: 20200204
  Transmission Date: 20200409
  Serious: Yes (Life-Threatening, Hospitalization)
  Sender: FDA-Public Use
  Company Number: ES-MYLANLABS-2020M1012006

PATIENT
  Age: 51 Year
  Sex: Male

DRUGS (5)
  1. NEVIRAPINE. [Suspect]
     Active Substance: NEVIRAPINE
     Indication: ACQUIRED IMMUNODEFICIENCY SYNDROME
     Dosage: 1-0-1  DOSIS UNIDAD FRECUENCIA: 400 MG-MILIGRAMOS
     Route: 048
     Dates: start: 20140202, end: 20140320
  2. ESTAVUDINA [Suspect]
     Active Substance: STAVUDINE
     Indication: ACQUIRED IMMUNODEFICIENCY SYNDROME
     Dosage: || UNIDAD DE FRECUENCIA: 0 D?A
     Route: 048
     Dates: start: 20140202, end: 20140320
  3. ENALAPRIL [Concomitant]
     Active Substance: ENALAPRIL
     Indication: HYPERTENSION
     Dosage: 1-0-0 DOSIS UNIDAD FRECUENCIA: 20 MG-MILIGRAMOS  DOSIS POR TOMA:
     Route: 048
     Dates: start: 2009
  4. METFORMIN [Concomitant]
     Active Substance: METFORMIN HYDROCHLORIDE
     Indication: TYPE 2 DIABETES MELLITUS
     Dosage: 1-0-1 DOSIS UNIDAD FRECUENCIA: 1700 MG-MILIGRAMOS
     Route: 048
     Dates: start: 2009
  5. LAMIVUDINE. [Suspect]
     Active Substance: LAMIVUDINE
     Indication: ACQUIRED IMMUNODEFICIENCY SYNDROME
     Dosage: 150MG/12H
     Route: 048
     Dates: start: 20140202, end: 20140320

REACTIONS (5)
  - Drug reaction with eosinophilia and systemic symptoms [Recovering/Resolving]
  - Acute kidney injury [Recovering/Resolving]
  - Pyrexia [Recovering/Resolving]
  - Rash [Recovering/Resolving]
  - Hepatic failure [Not Recovered/Not Resolved]

NARRATIVE: CASE EVENT DATE: 20140313
